FAERS Safety Report 7114651-7 (Version None)
Quarter: 2010Q4

REPORT INFORMATION
  Report Type: 
  Country: None (occurrence: None)
  Receive Date: 20101122
  Receipt Date: 20101112
  Transmission Date: 20110411
  Serious: Yes (Hospitalization)
  Sender: FDA-Public Use
  Company Number: DE-BIOGENIDEC-2010BI034408

PATIENT
  Age: 33 Year
  Sex: Female
  Weight: 73 kg

DRUGS (4)
  1. TYSABRI [Suspect]
     Indication: MULTIPLE SCLEROSIS
     Route: 042
     Dates: start: 20070329, end: 20100531
  2. COPAXONE [Concomitant]
     Indication: MULTIPLE SCLEROSIS
     Route: 058
     Dates: start: 20100601
  3. CITALOPRAM [Concomitant]
     Indication: DEPRESSION
     Dates: start: 20100429
  4. AMANTADINE HCL [Concomitant]

REACTIONS (1)
  - NEPHROTIC SYNDROME [None]
